FAERS Safety Report 9476386 (Version 2)
Quarter: 2013Q4

REPORT INFORMATION
  Report Type: Spontaneous
  Country: US (occurrence: US)
  Receive Date: 20130826
  Receipt Date: 20131023
  Transmission Date: 20140711
  Serious: Yes (Death)
  Sender: FDA-Public Use
  Company Number: US-SANOFI-AVENTIS-2013SA084001

PATIENT
  Age: 60 Year
  Sex: Male
  Weight: 47 kg

DRUGS (6)
  1. LANTUS SOLOSTAR [Suspect]
     Indication: TYPE 2 DIABETES MELLITUS
     Route: 058
     Dates: start: 20080402, end: 20130818
  2. SOLOSTAR [Concomitant]
     Indication: TYPE 2 DIABETES MELLITUS
     Dates: start: 20080402, end: 20130818
  3. NOVOLOG [Concomitant]
     Indication: DIABETES MELLITUS
     Dosage: DOSE:5 UNIT(S)
     Dates: start: 20110425, end: 20130818
  4. METFORMIN [Concomitant]
     Indication: DIABETES MELLITUS
     Dates: start: 20121214, end: 20130415
  5. GLYBURIDE [Concomitant]
     Indication: DIABETES MELLITUS
     Dates: start: 20120414, end: 20121214
  6. SIMVASTATIN [Concomitant]
     Indication: BLOOD CHOLESTEROL
     Dates: start: 20100526, end: 20130722

REACTIONS (1)
  - Pancreatic carcinoma [Fatal]
